FAERS Safety Report 8349538-5 (Version None)
Quarter: 2012Q2

REPORT INFORMATION
  Report Type: 
  Country: None (occurrence: None)
  Receive Date: 20120510
  Receipt Date: 20101129
  Transmission Date: 20120825
  Serious: No
  Sender: FDA-Public Use
  Company Number: US-TEVA-2010005584

PATIENT
  Sex: Female
  Weight: 61.29 kg

DRUGS (2)
  1. NUVIGIL [Suspect]
     Dosage: 150 MILLIGRAM;
     Route: 048
     Dates: start: 20101022
  2. NUVIGIL [Suspect]
     Indication: SOMNOLENCE
     Dosage: 75 MILLIGRAM;
     Route: 048
     Dates: start: 20101021, end: 20101021

REACTIONS (2)
  - INTENTIONAL DRUG MISUSE [None]
  - DRUG INEFFECTIVE FOR UNAPPROVED INDICATION [None]
